FAERS Safety Report 7114330-6 (Version None)
Quarter: 2010Q4

REPORT INFORMATION
  Report Type: 
  Country: None (occurrence: None)
  Receive Date: 20101119
  Receipt Date: 20101109
  Transmission Date: 20110411
  Serious: Yes (Other)
  Sender: FDA-Public Use
  Company Number: US-PURDUE-USA-2010-0053706

PATIENT
  Sex: Female

DRUGS (6)
  1. COLACE CAPSULES [Suspect]
     Indication: CONSTIPATION
     Dosage: UNK
  2. REBIF [Suspect]
     Indication: MULTIPLE SCLEROSIS
     Dosage: 44 MCG, 3/WEEK
     Route: 058
     Dates: start: 20021101, end: 20090201
  3. SINGULAIR [Suspect]
     Indication: ASTHMA
     Dosage: UNK
     Dates: end: 20090621
  4. ALBUTEROL [Suspect]
     Indication: ASTHMA
     Dosage: UNK
     Dates: end: 20090621
  5. VITAMINS                           /90003601/ [Concomitant]
     Indication: ANAEMIA
     Dosage: UNK
  6. IRON [Concomitant]
     Indication: ANAEMIA
     Dosage: UNK

REACTIONS (3)
  - DRUG EXPOSURE DURING PREGNANCY [None]
  - PREGNANCY [None]
  - PREMATURE LABOUR [None]
